FAERS Safety Report 5715709-7 (Version None)
Quarter: 2008Q2

REPORT INFORMATION
  Report Type: 
  Country: None (occurrence: None)
  Receive Date: 20080422
  Receipt Date: 20080414
  Transmission Date: 20081010
  Serious: Yes (Other)
  Sender: FDA-Public Use
  Company Number: CHNY2007DE03594

PATIENT
  Age: 73 Year
  Sex: Female
  Weight: 68 kg

DRUGS (12)
  1. LAMISIL [Suspect]
     Indication: ONYCHOMYCOSIS
     Dosage: TOPICAL
     Route: 061
     Dates: start: 20070301
  2. TOREM (TORASEMIDE) [Concomitant]
  3. DIGITOXIN TAB [Concomitant]
  4. BISO-HENNING [Concomitant]
  5. RAMIPRIL [Concomitant]
  6. MAGNESIUM SUPPLEMENTS (MAGNESIUM) [Concomitant]
  7. ACETYLSALICYLIC ACID SRT [Concomitant]
  8. NOVODERM [Concomitant]
  9. SIMEX [Concomitant]
  10. TORSEMIDE [Concomitant]
  11. DIGITOX [Concomitant]
  12. BISO-HENNING (BISOPROLOL HEMIFUMARATE) [Concomitant]

REACTIONS (9)
  - APPLICATION SITE IRRITATION [None]
  - APPLICATION SITE PRURITUS [None]
  - BEDRIDDEN [None]
  - BURNING SENSATION [None]
  - MALAISE [None]
  - PAIN [None]
  - PRURITUS [None]
  - SUICIDAL IDEATION [None]
  - THINKING ABNORMAL [None]
